FAERS Safety Report 8307778-5 (Version None)
Quarter: 2012Q2

REPORT INFORMATION
  Report Type: 
  Country: None (occurrence: None)
  Receive Date: 20120424
  Receipt Date: 20120412
  Transmission Date: 20120825
  Serious: Yes (Hospitalization, Other)
  Sender: FDA-Public Use
  Company Number: US-PFIZER INC-2012068992

PATIENT
  Age: 73 Year
  Sex: Female
  Weight: 67.3 kg

DRUGS (1)
  1. SUNITINIB MALATE [Suspect]
     Indication: OVARIAN EPITHELIAL CANCER
     Dosage: 50 MG, DAILY, FOR 4WEEKS ON, 2 WEEKS OFF
     Route: 048
     Dates: start: 20111211, end: 20120220

REACTIONS (4)
  - HYPERKALAEMIA [None]
  - BLOOD CREATININE INCREASED [None]
  - HYPOCAPNIA [None]
  - RENAL FAILURE ACUTE [None]
